FAERS Safety Report 9746901 (Version 1)
Quarter: 2013Q4

REPORT INFORMATION
  Report Type: Spontaneous
  Country: FR (occurrence: FR)
  Receive Date: 20131211
  Receipt Date: 20131211
  Transmission Date: 20140711
  Serious: Yes (Death)
  Sender: FDA-Public Use
  Company Number: FR-B.I. PHARMACEUTICALS,INC./RIDGEFIELD-2013-BI-41249FF

PATIENT
  Age: 81 Year
  Sex: Male

DRUGS (8)
  1. PRADAXA [Suspect]
     Dosage: 220 MG
     Route: 048
     Dates: start: 201309
  2. COVERSYL [Concomitant]
     Dosage: DOSE PER APPLICATION: 0.5 TABLET IN THE MORNING
  3. INIPOMP [Concomitant]
     Dosage: 20 MG
  4. KARDEGIC [Concomitant]
     Dosage: 75 MG
  5. PAROXETINE [Concomitant]
     Dosage: DOSE PER APPLICATION: 0.5 TABLET IN THE MORNING
  6. SERESTA [Concomitant]
     Dosage: DOSE PER APPLICATION : (0.5 TABLET AT BEDTIME)
  7. TADENAN [Concomitant]
     Dosage: 50 MG
  8. OXYGEN [Concomitant]
     Dosage: DOSE PER APPLICATION AND DAILY DOSE: 3L/MIN CONTINUOUSLY.

REACTIONS (1)
  - Abdominal wall haematoma [Fatal]
